FAERS Safety Report 14642101 (Version 1)
Quarter: 2018Q1

REPORT INFORMATION
  Report Type: Spontaneous
  Country: QA (occurrence: QA)
  Receive Date: 20180315
  Receipt Date: 20180315
  Transmission Date: 20180509
  Serious: Yes (Hospitalization)
  Sender: FDA-Public Use
  Company Number: None

PATIENT
  Age: 18 Year
  Sex: Male
  Weight: 60 kg

DRUGS (6)
  1. TRAMADOL. [Concomitant]
     Active Substance: TRAMADOL
     Dates: start: 20160501, end: 20160531
  2. HYDROCORTISONE CREAM [Concomitant]
     Active Substance: HYDROCORTISONE
     Dates: start: 20160501, end: 20160522
  3. KETAMINE [Suspect]
     Active Substance: KETAMINE
     Indication: SEDATION
     Route: 040
     Dates: start: 20160501, end: 20160516
  4. QUETIAPENE [Suspect]
     Active Substance: QUETIAPINE
     Indication: DELIRIUM
     Route: 048
     Dates: start: 20160501, end: 20160516
  5. ESOMEPRAZOLE [Concomitant]
     Active Substance: ESOMEPRAZOLE
     Dates: start: 20160501, end: 20160530
  6. KETAMINE [Suspect]
     Active Substance: KETAMINE
     Indication: BURN DRESSING
     Route: 040
     Dates: start: 20160501, end: 20160516

REACTIONS (3)
  - Hypokalaemia [None]
  - Polyuria [None]
  - Hypernatraemia [None]

NARRATIVE: CASE EVENT DATE: 20160516
